FAERS Safety Report 7290362-2 (Version None)
Quarter: 2011Q1

REPORT INFORMATION
  Report Type: 
  Country: None (occurrence: None)
  Receive Date: 20110214
  Receipt Date: 20110207
  Transmission Date: 20110831
  Serious: Yes (Hospitalization, Other)
  Sender: FDA-Public Use
  Company Number: US-TEVA-266136USA

PATIENT
  Age: 46 Year
  Sex: Female

DRUGS (1)
  1. HYDROCHLOROTHIAZIDE TABLETS USP, 25MG AND 50MG [Suspect]

REACTIONS (2)
  - SHOCK [None]
  - PULMONARY OEDEMA [None]
